FAERS Safety Report 13467392 (Version 11)
Quarter: 2018Q1

REPORT INFORMATION
  Report Type: Report from Study
  Country: US (occurrence: US)
  Receive Date: 20170421
  Receipt Date: 20180315
  Transmission Date: 20180508
  Serious: Yes (Hospitalization, Other)
  Sender: FDA-Public Use
  Company Number: US-JNJFOC-20170215015

PATIENT
  Age: 89 Year
  Sex: Female

DRUGS (29)
  1. PLAVIX [Concomitant]
     Active Substance: CLOPIDOGREL BISULFATE
  2. HALDOL [Concomitant]
     Active Substance: HALOPERIDOL
  3. PRAVASTATIN. [Concomitant]
     Active Substance: PRAVASTATIN
     Dosage: 40 MG, UNK
  4. ALLOPURINOL. [Concomitant]
     Active Substance: ALLOPURINOL
  5. MULTIVITAMINS [Concomitant]
     Active Substance: VITAMINS
  6. FOLIC ACID. [Concomitant]
     Active Substance: FOLIC ACID
  7. OMEPRAZOLE. [Concomitant]
     Active Substance: OMEPRAZOLE
  8. SERTRALINE [Concomitant]
     Active Substance: SERTRALINE HYDROCHLORIDE
  9. BISACODYL. [Concomitant]
     Active Substance: BISACODYL
  10. ALTACE [Concomitant]
     Active Substance: RAMIPRIL
  11. MAGNESIUM OXIDE. [Concomitant]
     Active Substance: MAGNESIUM OXIDE
  12. TYLENOL [Concomitant]
     Active Substance: ACETAMINOPHEN
  13. LANSOPRAZOLE. [Concomitant]
     Active Substance: LANSOPRAZOLE
  14. SYNTHROID [Concomitant]
     Active Substance: LEVOTHYROXINE SODIUM
  15. IMBRUVICA [Suspect]
     Active Substance: IBRUTINIB
     Indication: MANTLE CELL LYMPHOMA
     Route: 048
     Dates: start: 20170204
  16. FLORASTOR [Concomitant]
     Active Substance: SACCHAROMYCES CEREVISIAE
  17. PROTONIX [Concomitant]
     Active Substance: PANTOPRAZOLE SODIUM
  18. DICLOFENAC [Concomitant]
     Active Substance: DICLOFENAC
  19. FERROUS GLUCONATE [Concomitant]
     Active Substance: FERROUS GLUCONATE
  20. FIBER [Concomitant]
     Active Substance: PSYLLIUM HUSK
  21. IMBRUVICA [Suspect]
     Active Substance: IBRUTINIB
     Indication: MANTLE CELL LYMPHOMA
     Route: 048
     Dates: start: 20170203, end: 20170413
  22. ALEVE [Suspect]
     Active Substance: NAPROXEN SODIUM
     Indication: PRODUCT USED FOR UNKNOWN INDICATION
     Route: 065
     Dates: end: 20170412
  23. IMBRUVICA [Suspect]
     Active Substance: IBRUTINIB
     Indication: MANTLE CELL LYMPHOMA
     Route: 048
     Dates: start: 20170417
  24. PLAVIX [Suspect]
     Active Substance: CLOPIDOGREL BISULFATE
     Indication: PRODUCT USED FOR UNKNOWN INDICATION
     Route: 065
     Dates: end: 201704
  25. ASPIRIN. [Concomitant]
     Active Substance: ASPIRIN
  26. ASPIRIN. [Suspect]
     Active Substance: ASPIRIN
     Indication: PRODUCT USED FOR UNKNOWN INDICATION
     Route: 065
     Dates: end: 20170412
  27. ZOLOFT [Concomitant]
     Active Substance: SERTRALINE HYDROCHLORIDE
  28. LEVOTHYROXINE SODIUM. [Concomitant]
     Active Substance: LEVOTHYROXINE SODIUM
  29. VITAMIN D [Concomitant]
     Active Substance: CHOLECALCIFEROL

REACTIONS (23)
  - Haemorrhage urinary tract [Recovering/Resolving]
  - Dry skin [Not Recovered/Not Resolved]
  - Chromaturia [Unknown]
  - Disease progression [Unknown]
  - Ischaemic stroke [Unknown]
  - Fatigue [Not Recovered/Not Resolved]
  - Rash pruritic [Not Recovered/Not Resolved]
  - Upper respiratory tract infection [Not Recovered/Not Resolved]
  - Oral pain [Unknown]
  - Post procedural infection [Recovered/Resolved]
  - Haematuria [Recovering/Resolving]
  - Thyroid hormones decreased [Unknown]
  - Appetite disorder [Recovering/Resolving]
  - Asthenia [Not Recovered/Not Resolved]
  - Hypersomnia [Not Recovered/Not Resolved]
  - Dry mouth [Unknown]
  - Rash [Unknown]
  - Laceration [Unknown]
  - Lethargy [Not Recovered/Not Resolved]
  - Staphylococcal infection [Recovered/Resolved]
  - Urine output decreased [Unknown]
  - Diarrhoea [Recovered/Resolved]
  - Contusion [Unknown]

NARRATIVE: CASE EVENT DATE: 20170205
